FAERS Safety Report 8953522 (Version 1)
Quarter: 2012Q4

REPORT INFORMATION
  Report Type: 
  Country: DE (occurrence: DE)
  Receive Date: 20121206
  Receipt Date: 20121206
  Transmission Date: 20130627
  Serious: Yes (Hospitalization, Other)
  Sender: FDA-Public Use
  Company Number: DE-MYLANLABS-2012S1024271

PATIENT
  Age: 0 Year
  Sex: Male
  Weight: 3.05 kg

DRUGS (2)
  1. CITALOPRAM [Suspect]
     Dosage: 60 [mg/d ]
     Route: 064
  2. FEMIBION [Concomitant]
     Indication: PROPHYLAXIS OF NEURAL TUBE DEFECT
     Dosage: 0.4 [mg/d ]
     Route: 064

REACTIONS (6)
  - Exposure during pregnancy [Unknown]
  - Neonatal respiratory distress syndrome [Recovered/Resolved]
  - Hypoglycaemia neonatal [Recovered/Resolved]
  - Developmental delay [Recovered/Resolved]
  - Agitation [Recovered/Resolved]
  - Foetal heart rate decreased [Recovered/Resolved]
